FAERS Safety Report 5057217-5 (Version None)
Quarter: 2006Q3

REPORT INFORMATION
  Report Type: 
  Country: None (occurrence: None)
  Receive Date: 20060721
  Receipt Date: 20050615
  Transmission Date: 20061208
  Serious: Yes (Other)
  Sender: FDA-Public Use
  Company Number: US-GLAXOSMITHKLINE-A0562797A

PATIENT
  Sex: Male

DRUGS (3)
  1. AVANDIA [Suspect]
     Dosage: 4MG PER DAY
     Route: 048
     Dates: start: 20041201
  2. GLUCOPHAGE [Concomitant]
  3. PREDNISONE [Concomitant]

REACTIONS (4)
  - ABDOMINAL DISTENSION [None]
  - JOINT SWELLING [None]
  - SWELLING FACE [None]
  - WEIGHT INCREASED [None]
